FAERS Safety Report 12041166 (Version 1)
Quarter: 2016Q1

REPORT INFORMATION
  Report Type: Report from Study
  Country: US (occurrence: US)
  Receive Date: 20160208
  Receipt Date: 20160208
  Transmission Date: 20160526
  Serious: No
  Sender: FDA-Public Use
  Company Number: US-ABBVIE-15K-163-1529783-00

PATIENT
  Age: 77 Year
  Sex: Male
  Weight: 75.36 kg

DRUGS (12)
  1. OMEPRAZOLE. [Concomitant]
     Active Substance: OMEPRAZOLE
     Indication: GASTROOESOPHAGEAL REFLUX DISEASE
  2. HUMALOG [Concomitant]
     Active Substance: INSULIN LISPRO
     Indication: DIABETES MELLITUS
  3. HUMIRA [Suspect]
     Active Substance: ADALIMUMAB
     Indication: PSORIATIC ARTHROPATHY
     Route: 058
     Dates: start: 2014, end: 201512
  4. FOLIC ACID. [Concomitant]
     Active Substance: FOLIC ACID
     Indication: CORONARY ARTERY BYPASS
  5. SLOW-MAG [Concomitant]
     Active Substance: MAGNESIUM CHLORIDE
     Indication: VASCULAR GRAFT
  6. LOSARTAN. [Concomitant]
     Active Substance: LOSARTAN
     Indication: HYPERTENSION
  7. ASPIRIN. [Concomitant]
     Active Substance: ASPIRIN
     Indication: VASCULAR GRAFT
  8. LANTUS [Concomitant]
     Active Substance: INSULIN GLARGINE
     Indication: DIABETES MELLITUS
  9. METOPROLOL. [Concomitant]
     Active Substance: METOPROLOL
     Indication: HYPERTENSION
  10. METHOTREXATE [Concomitant]
     Active Substance: METHOTREXATE
     Indication: RHEUMATOID ARTHRITIS
  11. SIMVASTATIN. [Concomitant]
     Active Substance: SIMVASTATIN
     Indication: BLOOD CHOLESTEROL INCREASED
  12. VITAMIN B12 [Concomitant]
     Active Substance: CYANOCOBALAMIN
     Indication: VITAMIN SUPPLEMENTATION

REACTIONS (2)
  - Pain in jaw [Recovering/Resolving]
  - Ear infection [Recovering/Resolving]

NARRATIVE: CASE EVENT DATE: 201512
